FAERS Safety Report 15228724 (Version 1)
Quarter: 2018Q3

REPORT INFORMATION
  Report Type: Report from Study
  Country: CA (occurrence: CA)
  Receive Date: 20180801
  Receipt Date: 20180801
  Transmission Date: 20181010
  Serious: Yes (Hospitalization)
  Sender: FDA-Public Use
  Company Number: CA-HLSUS-2018-CA-001128

PATIENT
  Age: 14 Year
  Sex: Male

DRUGS (2)
  1. CLOZAPINE. [Suspect]
     Active Substance: CLOZAPINE
  2. VITAMINS [Concomitant]
     Active Substance: VITAMINS

REACTIONS (25)
  - Blood prolactin increased [Unknown]
  - Disturbance in attention [Unknown]
  - Psychotic disorder [Unknown]
  - Tremor [Recovering/Resolving]
  - Irritability [Unknown]
  - Psychomotor hyperactivity [Unknown]
  - Distractibility [Unknown]
  - Salivary hypersecretion [Recovered/Resolved]
  - Alanine aminotransferase increased [Unknown]
  - Flight of ideas [Unknown]
  - Agitation [Unknown]
  - Energy increased [Unknown]
  - Tension [Unknown]
  - White blood cell count decreased [Unknown]
  - Schizophrenia [Unknown]
  - Tachyphrenia [Unknown]
  - Mania [Unknown]
  - Cogwheel rigidity [Unknown]
  - Drooling [Unknown]
  - Impulsive behaviour [Unknown]
  - Thinking abnormal [Unknown]
  - Neutrophil count decreased [Unknown]
  - Frustration tolerance decreased [Unknown]
  - Aggression [Unknown]
  - Tachycardia [Unknown]

NARRATIVE: CASE EVENT DATE: 20180217
